FAERS Safety Report 10287246 (Version 2)
Quarter: 2014Q3

REPORT INFORMATION
  Report Type: Spontaneous
  Country: US (occurrence: US)
  Receive Date: 20140709
  Receipt Date: 20140709
  Transmission Date: 20150326
  Serious: No
  Sender: FDA-Public Use
  Company Number: US-BAYER-2014-102632

PATIENT
  Age: 42 Year
  Sex: Female

DRUGS (1)
  1. MIRENA [Suspect]
     Active Substance: LEVONORGESTREL
     Indication: CONTRACEPTION
     Dosage: 20 ?G/D, CONT
     Route: 015
     Dates: start: 2012

REACTIONS (7)
  - Hot flush [None]
  - Mood altered [None]
  - Weight increased [None]
  - Oestradiol abnormal [None]
  - Memory impairment [None]
  - Blood follicle stimulating hormone abnormal [None]
  - Night sweats [None]

NARRATIVE: CASE EVENT DATE: 2013
